FAERS Safety Report 8589076-8 (Version None)
Quarter: 2012Q3

REPORT INFORMATION
  Report Type: 
  Country: None (occurrence: None)
  Receive Date: 20120813
  Receipt Date: 20120730
  Transmission Date: 20120928
  Serious: Yes (Hospitalization)
  Sender: FDA-Public Use
  Company Number: FR-MPIJNJ-2012-05424

PATIENT

DRUGS (12)
  1. DEXAMETHASONE [Suspect]
     Indication: MULTIPLE MYELOMA
     Dosage: 20 MG, UNK
     Route: 065
     Dates: start: 20120319
  2. LEVOTHYROXINE SODIUM [Concomitant]
     Dosage: 75 A?G, UNK
  3. RULID [Concomitant]
     Dosage: 2 DF, UNK
  4. MOPRAL                             /00661201/ [Concomitant]
     Dosage: 20 MG, UNK
  5. ZELITREX                           /01269701/ [Concomitant]
     Dosage: 500 MG, UNK
  6. VELCADE [Suspect]
     Indication: MULTIPLE MYELOMA
     Dosage: 1.3 MG/M2, UNK
     Route: 042
     Dates: start: 20120326
  7. BISOPROLOL [Concomitant]
     Dosage: 10 MG, UNK
  8. AMLODIPINE BESYLATE [Concomitant]
     Dosage: 10 MG, UNK
  9. SODIUM BICARBONATE [Concomitant]
     Dosage: 500 MG, UNK
  10. SIMVASTATIN [Concomitant]
     Dosage: 20 MG, UNK
  11. TARDYFERON                         /00023503/ [Concomitant]
     Dosage: 2 DF, UNK
  12. ATOVAQUONE [Concomitant]

REACTIONS (5)
  - TRICUSPID VALVE INCOMPETENCE [None]
  - PERICARDIAL EFFUSION [None]
  - VERTIGO [None]
  - ORTHOSTATIC HYPOTENSION [None]
  - FALL [None]
